FAERS Safety Report 19097758 (Version 1)
Quarter: 2021Q2

REPORT INFORMATION
  Report Type: Spontaneous
  Country: GB (occurrence: GB)
  Receive Date: 20210406
  Receipt Date: 20210406
  Transmission Date: 20210717
  Serious: Yes (Hospitalization)
  Sender: FDA-Public Use
  Company Number: GB-ACCORD-217091

PATIENT
  Age: 66 Year
  Sex: Female

DRUGS (22)
  1. SYMBICORT ASTRAZENECA UK LTD [Concomitant]
     Indication: ASTHMA
     Dosage: 2 PUFFS TWICE A DAY
     Dates: start: 20201201
  2. COLECALCIFEROL [Concomitant]
     Active Substance: CHOLECALCIFEROL
     Indication: VITAMIN D DEFICIENCY
     Dosage: STRENGTH?800 UNIT, ONE A DAY
     Dates: start: 20201201
  3. FEXOFENADINE [Concomitant]
     Active Substance: FEXOFENADINE HYDROCHLORIDE
     Indication: RASH
     Dosage: 120 MG, ONE DAILY
     Dates: start: 20201201
  4. SPIRONOLACTONE. [Concomitant]
     Active Substance: SPIRONOLACTONE
     Dosage: STRENGTH?25 MG, HALF OF ONE TABLET TWICE A DAY
     Dates: start: 20210309
  5. CODEINE PHOSPHATE/PARACETAMOL [Concomitant]
     Active Substance: ACETAMINOPHEN\CODEINE PHOSPHATE
     Dosage: STRENGTH?8 MG/500 MG, ONE OR TWO TABLETS FOUR TIME A DAY WHEN REQUIRED
     Dates: start: 20201201
  6. OLOPATADINE/OLOPATADINE HYDROCHLORIDE [Concomitant]
     Active Substance: OLOPATADINE
     Dosage: STRENGTH?1 MG/ML, 1 DROP TWICE DAILY
     Dates: start: 20201112
  7. HYPROMELLOSE/HYPROMELLOSE PHTHALATE [Concomitant]
     Indication: DRY EYE
     Dosage: 0.3 %, AS REQUIRED
     Dates: start: 20201201
  8. AMOXICILLIN. [Concomitant]
     Active Substance: AMOXICILLIN
     Indication: ASTHMA
     Dosage: STRENGTH?500 MG, ONE 3 TIMES PER DAY
     Dates: start: 20201201
  9. FORTISIP NEUTRICIA [Concomitant]
     Dosage: BOTTLE 11200 ML, 1?2 DAILY AS NEEDED
     Dates: start: 20210309
  10. SERTRALINE ACCORD [Suspect]
     Active Substance: SERTRALINE HYDROCHLORIDE
     Indication: DEPRESSION
     Dosage: STRENGTH?100MG, 40 YEARS AGO, ON A DAY
     Route: 048
     Dates: start: 20201201
  11. LIBRIUM [Suspect]
     Active Substance: CHLORDIAZEPOXIDE HYDROCHLORIDE
     Indication: ALCOHOL USE
  12. TERBUTALINE [Concomitant]
     Active Substance: TERBUTALINE
     Indication: CHRONIC OBSTRUCTIVE PULMONARY DISEASE
     Dosage: STRENGTH?500 MICROGRAMS/DOSE DRY POWDER INHALER 100 DOSE?INHALE 1 DOSE AS NEEDED? UP TO TIMES A DAY
     Dates: start: 20201201
  13. ESOMEPRAZOLE. [Concomitant]
     Active Substance: ESOMEPRAZOLE MAGNESIUM
     Indication: ABDOMINAL PAIN UPPER
     Dosage: STRENGTH?20 MG, 1 TWICE A DAY
     Dates: start: 20201201
  14. PARACETAMOL [Concomitant]
     Active Substance: ACETAMINOPHEN
     Dosage: STRENGTH?500 MG, 1?2 FOUR TIMES WHEN REQUIRED
     Dates: start: 20210211
  15. LEVOTHYROXINE. [Concomitant]
     Active Substance: LEVOTHYROXINE
     Indication: THYROIDITIS
     Dosage: STRENGTH?25 MICROGRAMS, ONE EACH MORNING
     Dates: start: 20201112
  16. PABRINEX [Concomitant]
     Active Substance: ASCORBIC ACID\VITAMIN B COMPLEX
  17. FORTISIP NEUTRICIA [Concomitant]
     Dosage: COMPACT STARTER PACK LIQUID, ONE TWICE A DAY, 1500 ML
     Dates: start: 20210225
  18. SUMATRIPTAN. [Concomitant]
     Active Substance: SUMATRIPTAN
     Indication: MIGRAINE
     Dosage: STRENGTH?50 MG, ONE MAY BE REPEATED AFTER 2 HOURS
     Dates: start: 20201201
  19. LOPERAMIDE [Concomitant]
     Active Substance: LOPERAMIDE
     Indication: GASTROINTESTINAL HAEMORRHAGE
     Dosage: STRENGTH?2MG, ONE AS REQUIRED
     Dates: start: 20201201
  20. THIAMINE. [Concomitant]
     Active Substance: THIAMINE
     Dosage: STRENGTH?100 MG, ONE TWICE A DAY
     Dates: start: 20201201
  21. DOXAZOSIN [Concomitant]
     Active Substance: DOXAZOSIN MESYLATE
     Indication: ESSENTIAL HYPERTENSION
     Dosage: STRENGTJ?2 MG, ONE TABLET ONCE A DAY
     Dates: start: 20210223
  22. FOLIC ACID. [Concomitant]
     Active Substance: FOLIC ACID
     Indication: FOLATE DEFICIENCY
     Dosage: STRENGTH?5 MG, ONE EACH DAY
     Dates: start: 20201201

REACTIONS (6)
  - Malaise [Unknown]
  - Confusional state [Unknown]
  - Loss of consciousness [Unknown]
  - Disorientation [Unknown]
  - Tremor [Unknown]
  - Weight decreased [Unknown]
